FAERS Safety Report 6214571-6 (Version None)
Quarter: 2009Q2

REPORT INFORMATION
  Report Type: 
  Country: None (occurrence: None)
  Receive Date: 20090604
  Receipt Date: 20090602
  Transmission Date: 20091009
  Serious: Yes (Life-Threatening, Hospitalization)
  Sender: FDA-Public Use
  Company Number: PHHO2009CA06797

PATIENT
  Sex: Male
  Weight: 76 kg

DRUGS (2)
  1. AMN107 AMN+CAP [Suspect]
     Indication: CHRONIC MYELOID LEUKAEMIA
     Dosage: 400MG BID
     Route: 048
     Dates: start: 20080714, end: 20090601
  2. KEPPRA [Concomitant]

REACTIONS (1)
  - MYOCARDIAL INFARCTION [None]
